FAERS Safety Report 19864763 (Version 1)
Quarter: 2021Q3

REPORT INFORMATION
  Report Type: Spontaneous
  Country: CN (occurrence: CN)
  Receive Date: 20210921
  Receipt Date: 20210921
  Transmission Date: 20211014
  Serious: Yes (Hospitalization)
  Sender: FDA-Public Use
  Company Number: CN-PFIZER INC-202101192495

PATIENT
  Age: 49 Year
  Sex: Female
  Weight: 49 kg

DRUGS (2)
  1. FLUCONAZOLE. [Suspect]
     Active Substance: FLUCONAZOLE
     Indication: PNEUMONIA CRYPTOCOCCAL
     Dosage: 0.3 G, 1X/DAY
     Route: 048
     Dates: start: 20210501, end: 20210909
  2. FLUCONAZOLE. [Suspect]
     Active Substance: FLUCONAZOLE
     Dosage: 0.1 G, 1X/DAY
     Route: 048
     Dates: start: 20210501, end: 20210909

REACTIONS (14)
  - International normalised ratio decreased [Unknown]
  - Drug ineffective [Unknown]
  - Asthenia [Recovering/Resolving]
  - High density lipoprotein increased [Unknown]
  - Low density lipoprotein increased [Unknown]
  - Sudden hearing loss [Recovering/Resolving]
  - Activated partial thromboplastin time shortened [Unknown]
  - Vertigo [Recovering/Resolving]
  - Nausea [Recovering/Resolving]
  - Chronic gastritis [Recovering/Resolving]
  - Blood cholesterol increased [Unknown]
  - Neutrophil count increased [Unknown]
  - Dehydration [Unknown]
  - Sinus bradycardia [Unknown]

NARRATIVE: CASE EVENT DATE: 20210825
